FAERS Safety Report 9404113 (Version 2)
Quarter: 2013Q3

REPORT INFORMATION
  Report Type: Report from Study
  Country: DE (occurrence: DE)
  Receive Date: 20130717
  Receipt Date: 20130827
  Transmission Date: 20140515
  Serious: Yes (Hospitalization)
  Sender: FDA-Public Use
  Company Number: DE-BIOGENIDEC-2013BI062081

PATIENT
  Age: 50 Year
  Sex: Female
  Weight: 72 kg

DRUGS (2)
  1. BG00012 [Suspect]
     Indication: MULTIPLE SCLEROSIS
     Route: 048
     Dates: start: 20101018
  2. CIPRALEX [Concomitant]
     Indication: DEPRESSION
     Route: 048
     Dates: start: 20120215

REACTIONS (4)
  - Thoracic vertebral fracture [Not Recovered/Not Resolved]
  - Bone contusion [Not Recovered/Not Resolved]
  - Contusion [Not Recovered/Not Resolved]
  - Spinal deformity [Not Recovered/Not Resolved]
